FAERS Safety Report 11949222 (Version 1)
Quarter: 2016Q1

REPORT INFORMATION
  Report Type: Spontaneous
  Country: CA (occurrence: None)
  Receive Date: 20160121
  Receipt Date: 20160121
  Transmission Date: 20160526
  Serious: Yes (Hospitalization)
  Sender: FDA-Public Use
  Company Number: None

PATIENT
  Age: 71 Year
  Sex: Male
  Weight: 86 kg

DRUGS (8)
  1. EZETIMIBE. [Concomitant]
     Active Substance: EZETIMIBE
  2. ROSUVASTATIN [Concomitant]
     Active Substance: ROSUVASTATIN
  3. AAS [Concomitant]
     Active Substance: ASPIRIN
  4. OLMETEC [Concomitant]
     Active Substance: OLMESARTAN MEDOXOMIL
  5. CASODEX [Suspect]
     Active Substance: BICALUTAMIDE
     Dates: end: 20160104
  6. OXYBUTININE [Concomitant]
     Active Substance: OXYBUTYNIN
  7. TAMSULOSIN [Concomitant]
     Active Substance: TAMSULOSIN
  8. LEUPROLIDE ACETATE. [Concomitant]
     Active Substance: LEUPROLIDE ACETATE
     Dates: end: 20151210

REACTIONS (3)
  - Post procedural complication [None]
  - Arrhythmia [None]
  - Chest pain [None]

NARRATIVE: CASE EVENT DATE: 20160106
